FAERS Safety Report 5300325-1 (Version None)
Quarter: 2007Q2

REPORT INFORMATION
  Report Type: 
  Country: None (occurrence: None)
  Receive Date: 20070410
  Receipt Date: 20070330
  Transmission Date: 20071010
  Serious: Yes (Hospitalization)
  Sender: FDA-Public Use
  Company Number: GXKR2007GB03039

PATIENT
  Age: 79 Year
  Sex: Female

DRUGS (10)
  1. ACETYSALICYLIC ACID (NGX)(ACETYLSALICYLIC ACID) UNKNOWN [Suspect]
     Indication: CEREBROVASCULAR ACCIDENT
     Dosage: 75 MG, QD, ORAL
     Route: 048
     Dates: end: 20070309
  2. DIPYRIDAMOLE [Suspect]
     Indication: PROPHYLAXIS
     Dosage: 200 MG, BID, ORAL
     Route: 048
     Dates: end: 20070309
  3. ALENDRONIC ACID (ALENDRONIC ACID) [Concomitant]
  4. BUMETANIDE [Concomitant]
  5. CALCICHEW DE (CALCIUM CARBONATE, COLECALCIFEROL) [Concomitant]
  6. COMBIVENT /JOR/ (IPRATROPIUM BROMIDE, SALBUTAMOL) [Concomitant]
  7. RAMIPRIL [Concomitant]
  8. SERETIDE ^ALLEN + HANBURYS LTD^ (FLUTICASONE PROPIONATE, SALMETEROL XI [Concomitant]
  9. SIMVASTATIN [Concomitant]
  10. TRAMADOL HCL [Concomitant]

REACTIONS (2)
  - DUODENAL ULCER [None]
  - GASTROINTESTINAL HAEMORRHAGE [None]
